FAERS Safety Report 12971035 (Version 2)
Quarter: 2016Q4

REPORT INFORMATION
  Report Type: Spontaneous
  Country: US (occurrence: US)
  Receive Date: 20161123
  Receipt Date: 20161128
  Transmission Date: 20170207
  Serious: No
  Sender: FDA-Public Use
  Company Number: US-JAZZ-2016-US-018825

PATIENT
  Sex: Female

DRUGS (35)
  1. MIRAPEX [Concomitant]
     Active Substance: PRAMIPEXOLE DIHYDROCHLORIDE
  2. OMNICEF                            /00497602/ [Concomitant]
     Active Substance: CEFOTAXIME SODIUM
  3. OMNICEF                            /00497602/ [Concomitant]
     Active Substance: CEFOTAXIME SODIUM
  4. GABAPENTIN. [Concomitant]
     Active Substance: GABAPENTIN
  5. METFORMIN HCL [Concomitant]
     Active Substance: METFORMIN HYDROCHLORIDE
  6. NYSTATIN. [Concomitant]
     Active Substance: NYSTATIN
  7. PROBIOTIC                          /06395501/ [Concomitant]
     Active Substance: BIFIDOBACTERIUM ANIMALIS SUBSP. LACTIS
  8. PROVIGIL [Concomitant]
     Active Substance: MODAFINIL
  9. ZYRTEC [Concomitant]
     Active Substance: CETIRIZINE HYDROCHLORIDE
  10. ADVIL (MEFENAMIC ACID) [Concomitant]
     Active Substance: MEFENAMIC ACID
  11. BACLOFEN. [Concomitant]
     Active Substance: BACLOFEN
  12. CITRANATAL ASSURE [Concomitant]
     Active Substance: .ALPHA.-TOCOPHEROL\ASCORBIC ACID\CALCIUM CITRATE\CHOLECALCIFEROL\COPPER\DOCONEXENT\DOCUSATE SODIUM\FOLIC ACID\ICOSAPENT\IODINE\IRON\NIACINAMIDE\PYRIDOXINE HYDROCHLORIDE\RIBOFLAVIN\THIAMINE\ZINC
  13. XYREM [Suspect]
     Active Substance: SODIUM OXYBATE
     Indication: NARCOLEPSY
     Dosage: 1.5 G, BID
     Route: 048
     Dates: start: 200504, end: 200504
  14. XYREM [Suspect]
     Active Substance: SODIUM OXYBATE
     Indication: CATAPLEXY
     Dosage: DOSE ADJUSTMENTS
     Route: 048
     Dates: start: 200504, end: 200711
  15. CYCLOBENZAPRINE [Concomitant]
     Active Substance: CYCLOBENZAPRINE
  16. EFFEXOR [Concomitant]
     Active Substance: VENLAFAXINE HYDROCHLORIDE
  17. NASONEX [Concomitant]
     Active Substance: MOMETASONE FUROATE
  18. VESICARE [Concomitant]
     Active Substance: SOLIFENACIN SUCCINATE
  19. DOXYCYCLINE HYCLATE. [Concomitant]
     Active Substance: DOXYCYCLINE HYCLATE
  20. LABETALOL HCL [Concomitant]
     Active Substance: LABETALOL HYDROCHLORIDE
  21. MELOXICAM. [Concomitant]
     Active Substance: MELOXICAM
  22. NITROFURANTOIN. [Concomitant]
     Active Substance: NITROFURANTOIN
  23. PANTOPRAZOLE SODIUM. [Concomitant]
     Active Substance: PANTOPRAZOLE SODIUM
  24. TYLENOL WITH CODEINE [Concomitant]
     Active Substance: ACETAMINOPHEN\CODEINE PHOSPHATE
  25. NABUMETONE. [Concomitant]
     Active Substance: NABUMETONE
  26. CIPRO [Concomitant]
     Active Substance: CIPROFLOXACIN HYDROCHLORIDE
  27. LEVOTHYROXINE. [Concomitant]
     Active Substance: LEVOTHYROXINE
  28. SPIRONOLACTONE. [Concomitant]
     Active Substance: SPIRONOLACTONE
  29. TRETINOIN. [Concomitant]
     Active Substance: TRETINOIN
  30. LISINOPRIL. [Concomitant]
     Active Substance: LISINOPRIL
  31. NEUROTIN                           /00949202/ [Concomitant]
     Active Substance: ACETYLCARNITINE HYDROCHLORIDE
  32. OMNICEF                            /00497602/ [Concomitant]
     Active Substance: CEFOTAXIME SODIUM
  33. MULTIVITAMINS                      /00116001/ [Concomitant]
  34. XYREM [Suspect]
     Active Substance: SODIUM OXYBATE
     Dosage: 4 G, TID
     Route: 048
     Dates: start: 200711
  35. NORCO [Concomitant]
     Active Substance: ACETAMINOPHEN\HYDROCODONE BITARTRATE

REACTIONS (1)
  - Unevaluable event [Unknown]
